FAERS Safety Report 22693977 (Version 4)
Quarter: 2023Q4

REPORT INFORMATION
  Report Type: Spontaneous
  Country: US (occurrence: US)
  Receive Date: 20230711
  Receipt Date: 20231003
  Transmission Date: 20240110
  Serious: Yes (Other)
  Sender: FDA-Public Use
  Company Number: US-BRISTOL-MYERS SQUIBB COMPANY-2023-097227

PATIENT
  Age: 63 Year
  Sex: Male

DRUGS (1)
  1. LENALIDOMIDE [Suspect]
     Active Substance: LENALIDOMIDE
     Indication: Plasma cell myeloma
     Dosage: FREQUENCY: TAKE ONE CAPSULE BY MOUTH EVERY OTHER DAY
     Route: 048
     Dates: start: 20230626

REACTIONS (6)
  - Off label use [Unknown]
  - Diarrhoea [Recovering/Resolving]
  - Renal disorder [Unknown]
  - Haemoglobin decreased [Not Recovered/Not Resolved]
  - Escherichia infection [Recovering/Resolving]
  - Pneumonia [Recovering/Resolving]
